FAERS Safety Report 6124655-9 (Version None)
Quarter: 2009Q1

REPORT INFORMATION
  Report Type: 
  Country: None (occurrence: None)
  Receive Date: 20090319
  Receipt Date: 20090312
  Transmission Date: 20090719
  Serious: Yes (Other)
  Sender: FDA-Public Use
  Company Number: B0565643A

PATIENT
  Age: 79 Year
  Sex: Female

DRUGS (6)
  1. LANOXIN [Suspect]
     Indication: CARDIAC FAILURE
     Dosage: .0625MG TWICE PER DAY
     Route: 048
     Dates: start: 20090101, end: 20090202
  2. ASPIRIN [Concomitant]
     Route: 048
  3. HYDROQUINIDINE [Concomitant]
     Route: 048
  4. ENAPREN [Concomitant]
     Dosage: 20MG TWICE PER DAY
     Route: 065
  5. KADIUR [Concomitant]
     Route: 065
  6. CARDURA [Concomitant]
     Dosage: 4MG TWICE PER DAY
     Route: 048

REACTIONS (5)
  - ASTHENIA [None]
  - DIARRHOEA [None]
  - DRUG TOXICITY [None]
  - MALAISE [None]
  - VERTIGO [None]
